FAERS Safety Report 22692591 (Version 3)
Quarter: 2025Q2

REPORT INFORMATION
  Report Type: Spontaneous
  Country: US (occurrence: US)
  Receive Date: 20230711
  Receipt Date: 20250403
  Transmission Date: 20250716
  Serious: Yes (Hospitalization)
  Sender: CHIESI
  Company Number: US-AMRYT PHARMACEUTICALS DAC-AEGR006371

PATIENT
  Age: 1 Year
  Sex: Female
  Weight: 11.338 kg

DRUGS (6)
  1. METRELEPTIN [Suspect]
     Active Substance: METRELEPTIN
     Indication: Congenital generalised lipodystrophy
     Route: 058
     Dates: start: 20230329, end: 20230403
  2. METRELEPTIN [Suspect]
     Active Substance: METRELEPTIN
     Dates: start: 20230329, end: 20230401
  3. METRELEPTIN [Suspect]
     Active Substance: METRELEPTIN
     Dosage: 0.6 MILLIGRAM (0.12ML OR 12 UNITS), QD
     Route: 058
     Dates: start: 20230322
  4. METRELEPTIN [Suspect]
     Active Substance: METRELEPTIN
     Dosage: 0.06 MG/KG, QD
     Route: 058
     Dates: start: 20230328, end: 20230402
  5. STERILE WATER [Concomitant]
     Active Substance: WATER
     Indication: Product used for unknown indication
  6. ALBUTEROL [Concomitant]
     Active Substance: ALBUTEROL
     Indication: Wheezing
     Dates: start: 202303

REACTIONS (9)
  - Hospitalisation [Unknown]
  - Pneumonia [Recovered/Resolved]
  - Fungal infection [Not Recovered/Not Resolved]
  - Otitis media acute [Recovered/Resolved]
  - Rash [Recovered/Resolved]
  - Diarrhoea [Recovered/Resolved]
  - Upper respiratory tract infection [Recovered/Resolved]
  - Urticaria [Unknown]
  - Therapy interrupted [Unknown]

NARRATIVE: CASE EVENT DATE: 20230330
